FAERS Safety Report 6873906-1 (Version None)
Quarter: 2010Q3

REPORT INFORMATION
  Report Type: 
  Country: None (occurrence: None)
  Receive Date: 20100723
  Receipt Date: 20090501
  Transmission Date: 20110219
  Serious: No
  Sender: FDA-Public Use
  Company Number: US-PFIZER INC-2009186514

PATIENT
  Sex: Male
  Weight: 79.819 kg

DRUGS (3)
  1. CHANTIX [Suspect]
     Indication: SMOKING CESSATION THERAPY
     Dosage: 0.5 MG, 2X/DAY
     Dates: start: 20090101
  2. SIMVASTATIN [Concomitant]
     Indication: BLOOD CHOLESTEROL INCREASED
     Dosage: UNK
     Dates: start: 20090101, end: 20090318
  3. KETOTIFEN FUMARATE [Concomitant]
     Indication: PULMONARY CONGESTION
     Dosage: UNK
     Dates: start: 20090101

REACTIONS (7)
  - ABNORMAL DREAMS [None]
  - DIZZINESS [None]
  - EYE MOVEMENT DISORDER [None]
  - FEELING ABNORMAL [None]
  - FLATULENCE [None]
  - INSOMNIA [None]
  - TINNITUS [None]
